FAERS Safety Report 8494831-9 (Version None)
Quarter: 2012Q3

REPORT INFORMATION
  Report Type: 
  Country: None (occurrence: None)
  Receive Date: 20120709
  Receipt Date: 20120629
  Transmission Date: 20120928
  Serious: Yes (Hospitalization)
  Sender: FDA-Public Use
  Company Number: US-JNJFOC-20120608257

PATIENT
  Age: 32 Year
  Sex: Female

DRUGS (4)
  1. PLAQUENIL [Concomitant]
  2. REMICADE [Suspect]
     Indication: PRODUCT USED FOR UNKNOWN INDICATION
     Route: 042
     Dates: start: 20090305
  3. REMICADE [Suspect]
     Route: 042
     Dates: start: 20101224
  4. METHOTREXATE [Concomitant]

REACTIONS (1)
  - INFUSION SITE CELLULITIS [None]
